FAERS Safety Report 4904355-0 (Version None)
Quarter: 2006Q1

REPORT INFORMATION
  Report Type: 
  Country: None (occurrence: None)
  Receive Date: 20060208
  Receipt Date: 20050825
  Transmission Date: 20060701
  Serious: Yes (Other)
  Sender: FDA-Public Use
  Company Number: US-GLAXOSMITHKLINE-A0571853A

PATIENT
  Age: 9 Year
  Sex: Female

DRUGS (4)
  1. PAXIL [Suspect]
     Indication: DRUG USE FOR UNKNOWN INDICATION
     Route: 048
     Dates: end: 20041201
  2. RITALIN [Concomitant]
  3. UNKNOWN MEDICATION [Concomitant]
  4. BENADRYL [Concomitant]

REACTIONS (1)
  - VISUAL ACUITY REDUCED [None]
